FAERS Safety Report 9782221 (Version 2)
Quarter: 2014Q2

REPORT INFORMATION
  Report Type: Spontaneous
  Country: FR (occurrence: FR)
  Receive Date: 20131226
  Receipt Date: 20140423
  Transmission Date: 20141212
  Serious: Yes (Hospitalization)
  Sender: FDA-Public Use
  Company Number: FR-ROCHE-1324449

PATIENT
  Age: 44 Year
  Sex: Male

DRUGS (7)
  1. MABTHERA [Suspect]
     Indication: B-CELL LYMPHOMA
     Route: 042
     Dates: start: 20101027, end: 20130204
  2. MABTHERA [Suspect]
     Route: 042
     Dates: start: 20110518, end: 20130204
  3. PREDNISOLONE [Suspect]
     Indication: B-CELL LYMPHOMA
     Route: 048
     Dates: start: 20101027, end: 20110327
  4. DOXORUBICINE [Suspect]
     Indication: B-CELL LYMPHOMA
     Route: 048
     Dates: start: 20101027, end: 20130327
  5. VINCRISTINE [Suspect]
     Indication: B-CELL LYMPHOMA
     Route: 042
     Dates: start: 20101027, end: 20110327
  6. CYCLOPHOSPHAMIDE [Suspect]
     Indication: B-CELL LYMPHOMA
     Route: 042
     Dates: start: 20101027, end: 20110327
  7. METHYLPREDNISOLONE [Concomitant]
     Indication: B-CELL LYMPHOMA
     Route: 065
     Dates: start: 20110518, end: 20130204

REACTIONS (2)
  - Metastases to peritoneum [Not Recovered/Not Resolved]
  - Colon cancer [Not Recovered/Not Resolved]
